FAERS Safety Report 22912289 (Version 2)
Quarter: 2023Q4

REPORT INFORMATION
  Report Type: Spontaneous
  Country: JP (occurrence: JP)
  Receive Date: 20230906
  Receipt Date: 20231026
  Transmission Date: 20240110
  Serious: Yes (Other)
  Sender: FDA-Public Use
  Company Number: JP-OTSUKA-2023_023233

PATIENT
  Age: 6 Decade
  Sex: Female

DRUGS (4)
  1. ABILIFY [Suspect]
     Active Substance: ARIPIPRAZOLE
     Indication: Schizophrenia
     Dosage: UNK
     Route: 065
  2. OLANZAPINE [Concomitant]
     Active Substance: OLANZAPINE
     Indication: Product used for unknown indication
     Dosage: 20MG
     Route: 065
  3. OLANZAPINE [Concomitant]
     Active Substance: OLANZAPINE
     Dosage: 5MG
     Route: 065
  4. DORAL [Concomitant]
     Active Substance: QUAZEPAM
     Indication: Product used for unknown indication
     Dosage: 15MG
     Route: 065

REACTIONS (3)
  - Intellectual disability [Unknown]
  - Communication disorder [Unknown]
  - Hypomania [Unknown]
